FAERS Safety Report 20916154 (Version 1)
Quarter: 2022Q2

REPORT INFORMATION
  Report Type: Spontaneous
  Country: US (occurrence: US)
  Receive Date: 20220604
  Receipt Date: 20220604
  Transmission Date: 20220720
  Serious: No
  Sender: FDA-Public Use
  Company Number: US-SA-SAC20220531000434

PATIENT
  Sex: Male

DRUGS (1)
  1. DUPIXENT [Suspect]
     Active Substance: DUPILUMAB

REACTIONS (6)
  - Penile erythema [Unknown]
  - Penile swelling [Unknown]
  - Dysuria [Unknown]
  - Eye pain [Unknown]
  - Product storage error [Unknown]
  - Wrong technique in product usage process [Unknown]
